FAERS Safety Report 17860858 (Version 2)
Quarter: 2020Q2

REPORT INFORMATION
  Report Type: Spontaneous
  Country: IN (occurrence: IN)
  Receive Date: 20200604
  Receipt Date: 20200610
  Transmission Date: 20200714
  Serious: Yes (Other)
  Sender: FDA-Public Use
  Company Number: IN-ROCHE-2614063

PATIENT
  Age: 60 Year
  Sex: Male

DRUGS (1)
  1. ACTILYSE [Suspect]
     Active Substance: ALTEPLASE
     Indication: MYOCARDIAL INFARCTION
     Route: 065

REACTIONS (2)
  - Coronary artery occlusion [Not Recovered/Not Resolved]
  - Coronavirus infection [Not Recovered/Not Resolved]
